FAERS Safety Report 25251042 (Version 4)
Quarter: 2025Q4

REPORT INFORMATION
  Report Type: Spontaneous
  Country: US (occurrence: US)
  Receive Date: 20250429
  Receipt Date: 20251020
  Transmission Date: 20260117
  Serious: No
  Sender: CALLIDITAS THERAPEUTICS AB
  Company Number: US-Calliditas-2025CAL01078

PATIENT
  Age: 20 Year
  Sex: Male

DRUGS (5)
  1. TARPEYO [Suspect]
     Active Substance: BUDESONIDE
     Indication: IgA nephropathy
     Route: 048
     Dates: start: 20250415, end: 20250924
  2. FISH OIL [Concomitant]
     Active Substance: FISH OIL
  3. LISINOPRIL [Concomitant]
     Active Substance: LISINOPRIL
  4. NIACIN [Concomitant]
     Active Substance: NIACIN
  5. DOXYCYCLINE [Concomitant]
     Active Substance: DOXYCYCLINE

REACTIONS (3)
  - Nasopharyngitis [Recovered/Resolved]
  - Acne [Not Recovered/Not Resolved]
  - Inappropriate schedule of product discontinuation [Unknown]

NARRATIVE: CASE EVENT DATE: 20250420
